FAERS Safety Report 7628547-5 (Version None)
Quarter: 2011Q4

REPORT INFORMATION
  Report Type: 
  Country: None (occurrence: None)
  Receive Date: 20110705
  Receipt Date: 20110705
  Transmission Date: 20120403
  Serious: Yes (Hospitalization)
  Sender: FDA-Public Use
  Company Number: QR41816-01

PATIENT
  Age: 69 Year
  Sex: Female
  Weight: 93.1 kg

DRUGS (1)
  1. GAMMAPLEX [Suspect]
     Indication: CHRONIC LYMPHOCYTIC LEUKAEMIA
     Dosage: 20G
     Dates: start: 20100805

REACTIONS (4)
  - PYREXIA [None]
  - HEART RATE INCREASED [None]
  - CHILLS [None]
  - RESPIRATORY RATE INCREASED [None]
